FAERS Safety Report 23710137 (Version 1)
Quarter: 2024Q2

REPORT INFORMATION
  Report Type: Spontaneous
  Country: IT (occurrence: IT)
  Receive Date: 20240405
  Receipt Date: 20240405
  Transmission Date: 20240716
  Serious: Yes (Life-Threatening, Other)
  Sender: FDA-Public Use
  Company Number: IT-Merz Pharmaceuticals GmbH-24-01080

PATIENT
  Age: 58 Year
  Sex: Male

DRUGS (7)
  1. XEOMIN [Suspect]
     Active Substance: INCOBOTULINUMTOXINA
     Indication: Muscle spasticity
  2. PAROXETINE [Concomitant]
     Active Substance: PAROXETINE
  3. ATORVASTATIN [Concomitant]
     Active Substance: ATORVASTATIN
  4. SIMVASTATIN [Concomitant]
     Active Substance: SIMVASTATIN
  5. INSULIN NOS [Concomitant]
     Active Substance: INSULIN NOS
  6. AMLODIPINE [Concomitant]
     Active Substance: AMLODIPINE BESYLATE
  7. SETREX [Concomitant]

REACTIONS (2)
  - Myocardial infarction [Recovering/Resolving]
  - Cough [Recovering/Resolving]

NARRATIVE: CASE EVENT DATE: 20240305
